FAERS Safety Report 19069111 (Version 1)
Quarter: 2021Q1

REPORT INFORMATION
  Report Type: Spontaneous
  Country: US (occurrence: US)
  Receive Date: 20210329
  Receipt Date: 20210329
  Transmission Date: 20210420
  Serious: Yes (Other)
  Sender: FDA-Public Use
  Company Number: US-BAYER-2021-107663

PATIENT
  Age: 58 Year
  Sex: Female

DRUGS (2)
  1. MIRENA [Suspect]
     Active Substance: LEVONORGESTREL
     Indication: MENOPAUSAL SYMPTOMS
     Dosage: 20 ?G PER DAY, CONTINUOUSLY
     Route: 015
     Dates: start: 201501, end: 20210313
  2. MIRENA [Suspect]
     Active Substance: LEVONORGESTREL
     Indication: GENITAL HAEMORRHAGE

REACTIONS (3)
  - Off label use of device [None]
  - Device use issue [None]
  - Intra-uterine contraceptive device removal [Not Recovered/Not Resolved]

NARRATIVE: CASE EVENT DATE: 20210313
